FAERS Safety Report 5373217-X (Version None)
Quarter: 2007Q2

REPORT INFORMATION
  Report Type: 
  Country: None (occurrence: None)
  Receive Date: 20070628
  Receipt Date: 20070625
  Transmission Date: 20071010
  Serious: Yes (Other)
  Sender: FDA-Public Use
  Company Number: PHEH2007US04480

PATIENT
  Age: 84 Year
  Sex: Female

DRUGS (5)
  1. ZELNORM [Suspect]
     Indication: CONSTIPATION
     Dosage: 6 MG, BID
     Route: 048
     Dates: start: 20030101, end: 20070406
  2. PLAVIX [Concomitant]
     Dates: start: 20061201
  3. NORVASC [Concomitant]
     Indication: HYPERTENSION
     Dates: start: 20020101
  4. ZOCOR [Concomitant]
     Indication: HYPERTENSION
     Dates: start: 20020101
  5. DARVOCET [Concomitant]
     Indication: ARTHRITIS
     Dates: start: 20040101

REACTIONS (4)
  - ARTERIOSCLEROSIS [None]
  - CHEST PAIN [None]
  - CORONARY ARTERIAL STENT INSERTION [None]
  - CORONARY ARTERY OCCLUSION [None]
